FAERS Safety Report 4353909-1 (Version None)
Quarter: 2004Q2

REPORT INFORMATION
  Report Type: 
  Country: None (occurrence: None)
  Receive Date: 20040503
  Receipt Date: 20040422
  Transmission Date: 20050107
  Serious: No
  Sender: FDA-Public Use
  Company Number: 04H-035-0258615-00

PATIENT

DRUGS (4)
  1. LEUCOVORIN CALCIUM [Suspect]
     Indication: CHEMOTHERAPY
     Dosage: 200 MG, DAYS 1-5, INTRAVENOUS
     Route: 042
  2. ETOPOSIDE [Suspect]
     Indication: CHEMOTHERAPY
     Dosage: 100 MG, DAYS 1-5, INTRAVEOUS
     Route: 042
  3. FLUOROURACIL [Suspect]
     Indication: CHEMOTHERAPY
     Dosage: 500 MG/M2, CONTINUOUS FOR 6 HOURS, DAYS 1-5, INTRAVENOUS
     Route: 042
  4. CISPLATIN [Suspect]
     Indication: CHEMOTHERAPY
     Dosage: 20 MG, DAYS 1-5, INTRAVENOUS
     Route: 042

REACTIONS (2)
  - NAUSEA [None]
  - VOMITING [None]
